FAERS Safety Report 18750777 (Version 3)
Quarter: 2021Q1

REPORT INFORMATION
  Report Type: Report from Study
  Country: US (occurrence: US)
  Receive Date: 20210118
  Receipt Date: 20210125
  Transmission Date: 20210419
  Serious: No
  Sender: FDA-Public Use
  Company Number: NVSC2021US006574

PATIENT
  Sex: Male

DRUGS (1)
  1. COSENTYX [Suspect]
     Active Substance: SECUKINUMAB
     Indication: PSORIATIC ARTHROPATHY
     Dosage: 300 MG, Q4W
     Route: 058
     Dates: start: 20200924

REACTIONS (4)
  - Acrochordon [Unknown]
  - Injection site haemorrhage [Unknown]
  - Injection site swelling [Unknown]
  - Injection site bruising [Unknown]
